FAERS Safety Report 26118009 (Version 2)
Quarter: 2025Q4

REPORT INFORMATION
  Report Type: Spontaneous
  Country: US (occurrence: US)
  Receive Date: 20251203
  Receipt Date: 20251208
  Transmission Date: 20260117
  Serious: Yes (Other)
  Sender: PFIZER
  Company Number: US-PFIZER INC-PV202500139917

PATIENT
  Age: 4 Month

DRUGS (6)
  1. FUROSEMIDE [Suspect]
     Active Substance: FUROSEMIDE
     Indication: Urine output decreased
     Dosage: 5 MG, SINGLE (ONE TIME OF 5 MG-APPROXIMATE 0.9 MG/KG/DOSE)
     Route: 042
  2. FUROSEMIDE [Suspect]
     Active Substance: FUROSEMIDE
     Dosage: 10 MG, SINGLE (ONE TIME OF 10 MG-APPROXIMATE 1.8 MG/KG/DOSE)
     Route: 042
  3. FUROSEMIDE [Suspect]
     Active Substance: FUROSEMIDE
     Dosage: 1 MG/KG, 2X/DAY (1 MG/KG/DOSE, EVERY 12 HOURS)
     Route: 042
  4. FUROSEMIDE [Suspect]
     Active Substance: FUROSEMIDE
     Dosage: 1 MG/KG, 4X/DAY  (1 MG/KG/DOSE, EVERY 6 HOURS)
     Route: 042
  5. CEFAZOLIN [Suspect]
     Active Substance: CEFAZOLIN
     Indication: Prophylaxis
     Dosage: UNK (TWO DOSES)
  6. CEFEPIME [Suspect]
     Active Substance: CEFEPIME HYDROCHLORIDE
     Indication: Pyrexia
     Dosage: UNK (FOR 2 DAYS)

REACTIONS (1)
  - Neutropenia [Recovered/Resolved]
